FAERS Safety Report 8965707 (Version 1)
Quarter: 2012Q4

REPORT INFORMATION
  Report Type: Spontaneous
  Country: US (occurrence: None)
  Receive Date: 20121206
  Receipt Date: 20121206
  Transmission Date: 20130627
  Serious: Yes (Other)
  Sender: FDA-Public Use
  Company Number: JPI-P-026648

PATIENT
  Age: 70 Year
  Sex: Female
  Weight: 68.04 kg

DRUGS (6)
  1. XYREM (500 MILLIGRAM/MILLILITERS, SOLUTION) (SODIUM OXYBATE) [Suspect]
     Indication: CATAPLEXY
     Dosage: (Unknown), Oral
     Route: 048
     Dates: start: 20030616
  2. XYREM (500 MILLIGRAM/MILLILITERS, SOLUTION) (SODIUM OXYBATE) [Suspect]
     Indication: CATAPLEXY
     Dosage: 9 gm (4.5 gm, 2  in  1 D), Oral
     Route: 048
     Dates: end: 201211
  3. OXYBUTYNIN [Concomitant]
  4. TRIAMCINOLONE ACETONIDE [Concomitant]
  5. PROTRIPTYLINE HYDROCHLORIDE [Concomitant]
  6. HYDROCHLOROTHIAZIDE [Concomitant]

REACTIONS (6)
  - Joint injury [None]
  - Cataplexy [None]
  - Gait disturbance [None]
  - Blister [None]
  - Laceration [None]
  - Wound secretion [None]
